FAERS Safety Report 5306599-5 (Version None)
Quarter: 2007Q2

REPORT INFORMATION
  Report Type: 
  Country: None (occurrence: None)
  Receive Date: 20070424
  Receipt Date: 20070416
  Transmission Date: 20071010
  Serious: Yes (Hospitalization)
  Sender: FDA-Public Use
  Company Number: FR-PFIZER INC-2007002285

PATIENT
  Age: 80 Year
  Sex: Female

DRUGS (15)
  1. XANAX [Suspect]
     Indication: DYSTHYMIC DISORDER
     Route: 048
  2. MIANSERIN [Suspect]
     Indication: DYSTHYMIC DISORDER
     Route: 048
  3. DIHYDROERGOTAMINE ^LAFARGE^ [Concomitant]
     Route: 048
  4. ALLOPURINOL [Concomitant]
     Route: 048
     Dates: end: 20060710
  5. ZYRTEC [Concomitant]
     Route: 048
  6. LASIX [Concomitant]
     Route: 048
  7. INSULATARD [Concomitant]
  8. BISOPRODOL FUMARATE [Concomitant]
  9. DIFFU K [Concomitant]
  10. TRIATEC [Concomitant]
  11. PREVISCAN [Concomitant]
  12. METFORMIN HCL [Concomitant]
  13. GLYBURIDE [Concomitant]
  14. SERETIDE [Concomitant]
  15. NOVONORM [Concomitant]

REACTIONS (5)
  - DERMATITIS EXFOLIATIVE [None]
  - RASH MORBILLIFORM [None]
  - RASH SCARLATINIFORM [None]
  - TOXIC SKIN ERUPTION [None]
  - XEROSIS [None]
